FAERS Safety Report 24290816 (Version 3)
Quarter: 2024Q4

REPORT INFORMATION
  Report Type: Spontaneous
  Country: CA (occurrence: CA)
  Receive Date: 20240906
  Receipt Date: 20241025
  Transmission Date: 20250115
  Serious: No
  Sender: PFIZER
  Company Number: CA-PFIZER INC-202400244506

PATIENT
  Age: 63 Year
  Sex: Female

DRUGS (3)
  1. ABRILADA [Suspect]
     Active Substance: ADALIMUMAB-AFZB
     Indication: Crohn^s disease
     Dosage: INDUCTION 40MG Q2 WEEKS
     Route: 058
     Dates: start: 20230322, end: 2024
  2. ABRILADA [Suspect]
     Active Substance: ADALIMUMAB-AFZB
     Dosage: 40 MG, WEEKLY
     Route: 058
     Dates: start: 2024
  3. ABRILADA [Suspect]
     Active Substance: ADALIMUMAB-AFZB
     Dosage: UNK
     Route: 058
     Dates: start: 202408

REACTIONS (1)
  - Device operational issue [Unknown]

NARRATIVE: CASE EVENT DATE: 20240801
